FAERS Safety Report 8975492 (Version 1)
Quarter: 2012Q4

REPORT INFORMATION
  Report Type: 
  Country: US (occurrence: US)
  Receive Date: 20121219
  Receipt Date: 20121219
  Transmission Date: 20130627
  Serious: No
  Sender: FDA-Public Use
  Company Number: US-PFIZER INC-2012321590

PATIENT
  Age: 58 Year
  Sex: Female
  Weight: 67.12 kg

DRUGS (6)
  1. CHANTIX [Suspect]
     Indication: SMOKING CESSATION THERAPY
     Dosage: 1 mg, 2x/day
     Dates: start: 20121109
  2. NORCO [Concomitant]
     Indication: PAIN
     Dosage: UNK
  3. ZETIA [Concomitant]
     Indication: BLOOD CHOLESTEROL ABNORMAL
     Dosage: UNK
  4. NICOTINE [Concomitant]
     Indication: SMOKING CESSATION THERAPY
     Dosage: UNK
  5. BACLOFEN [Concomitant]
     Indication: MUSCLE RELAXANT
     Dosage: UNK
  6. OXYBUTYNIN [Concomitant]
     Dosage: UNK

REACTIONS (3)
  - Product quality issue [Unknown]
  - Drug ineffective [Unknown]
  - Abnormal dreams [Unknown]
